FAERS Safety Report 13350188 (Version 1)
Quarter: 2017Q1

REPORT INFORMATION
  Report Type: Spontaneous
  Country: US (occurrence: US)
  Receive Date: 20170317
  Receipt Date: 20170317
  Transmission Date: 20170429
  Serious: No
  Sender: FDA-Public Use
  Company Number: None

PATIENT
  Age: 5 Year
  Sex: Female
  Weight: 7.48 kg

DRUGS (1)
  1. NUTROPIN AQ NUSPIN 10 [Suspect]
     Active Substance: SOMATROPIN
     Indication: CHRONIC KIDNEY DISEASE
     Dosage: 10MG/2ML  6 DAYS WEEK SQ
     Route: 058
     Dates: start: 20150220

REACTIONS (1)
  - Blood parathyroid hormone increased [None]
